FAERS Safety Report 5035874-7 (Version None)
Quarter: 2006Q2

REPORT INFORMATION
  Report Type: 
  Country: None (occurrence: None)
  Receive Date: 20060526
  Receipt Date: 20060207
  Transmission Date: 20061013
  Serious: Yes (Hospitalization)
  Sender: FDA-Public Use
  Company Number: WAES 0602USA01531

PATIENT
  Age: 58 Year
  Sex: Female
  Weight: 133.3575 kg

DRUGS (10)
  1. VYTORIN [Suspect]
     Indication: BLOOD CHOLESTEROL INCREASED
     Dosage: 10-20 MG/DAILY/PO
     Route: 048
     Dates: start: 20051115, end: 20060101
  2. VYTORIN [Suspect]
     Indication: HYPERLIPIDAEMIA
     Dosage: 10-20 MG/DAILY/PO
     Route: 048
     Dates: start: 20051115, end: 20060101
  3. DARVOCET [Concomitant]
  4. ENABLEX [Concomitant]
  5. NEURONTIN [Concomitant]
  6. PROTONIX [Concomitant]
  7. ZESTRIL [Concomitant]
  8. GLYBURIDE [Concomitant]
  9. METFORMIN [Concomitant]
  10. NADOLOL [Concomitant]

REACTIONS (3)
  - ALANINE AMINOTRANSFERASE INCREASED [None]
  - BLOOD BILIRUBIN INCREASED [None]
  - JAUNDICE [None]
